FAERS Safety Report 11457901 (Version 1)
Quarter: 2015Q3

REPORT INFORMATION
  Report Type: Spontaneous
  Country: LV (occurrence: LV)
  Receive Date: 20150904
  Receipt Date: 20150904
  Transmission Date: 20151125
  Serious: Yes (Other)
  Sender: FDA-Public Use
  Company Number: PHHY2015LV103104

PATIENT
  Age: 79 Year
  Sex: Female
  Weight: 67 kg

DRUGS (4)
  1. CHOLECALCIFEROLUM [Concomitant]
     Indication: VITAMIN D DEFICIENCY
     Dosage: 1 REIZI DIENA, DEVA NAV ZINAMA
     Route: 048
  2. VINPOCETINUM [Concomitant]
     Indication: CEREBROVASCULAR DISORDER
     Route: 048
  3. CILOSTAZOL SANDOZ [Suspect]
     Active Substance: CILOSTAZOL
     Indication: PERIPHERAL ARTERIAL OCCLUSIVE DISEASE
     Dosage: 100 MG, QD
     Route: 048
     Dates: start: 20150501, end: 20150801
  4. RAMIPRILUM [Concomitant]
     Indication: HYPERTENSION
     Route: 048

REACTIONS (5)
  - Feeling abnormal [Recovering/Resolving]
  - Cough [Recovering/Resolving]
  - Chest discomfort [Recovering/Resolving]
  - Oropharyngeal pain [Recovering/Resolving]
  - Diarrhoea [Recovering/Resolving]

NARRATIVE: CASE EVENT DATE: 20150515
